FAERS Safety Report 7386596-9 (Version None)
Quarter: 2011Q1

REPORT INFORMATION
  Report Type: 
  Country: None (occurrence: None)
  Receive Date: 20110331
  Receipt Date: 20110324
  Transmission Date: 20110831
  Serious: No
  Sender: FDA-Public Use
  Company Number: GB-ROCHE-767252

PATIENT
  Age: 23 Year
  Sex: Female

DRUGS (2)
  1. ACCUTANE [Suspect]
     Route: 065
     Dates: start: 20110125
  2. DIANETTE [Concomitant]
     Indication: CONTRACEPTION
     Route: 048

REACTIONS (2)
  - PREGNANCY [None]
  - NO ADVERSE EVENT [None]
